FAERS Safety Report 11315346 (Version 2)
Quarter: 2015Q3

REPORT INFORMATION
  Report Type: Spontaneous
  Country: JP (occurrence: JP)
  Receive Date: 20150727
  Receipt Date: 20150917
  Transmission Date: 20151125
  Serious: Yes (Death)
  Sender: FDA-Public Use
  Company Number: PHJP2015JP012776

PATIENT
  Age: 91 Year
  Sex: Male

DRUGS (20)
  1. GLUCOSE INJECTION [Concomitant]
     Indication: PRODUCT USED FOR UNKNOWN INDICATION
     Dosage: 250 ML, UNK
     Route: 041
     Dates: start: 20130808, end: 20150702
  2. YUCION-S [Concomitant]
     Active Substance: AMPICILLIN SODIUM\SULBACTAM SODIUM
     Indication: PRODUCT USED FOR UNKNOWN INDICATION
     Dosage: 1.5 G, BID
     Route: 041
     Dates: start: 20130808
  3. ACINON                             /01340901/ [Concomitant]
     Indication: PRODUCT USED FOR UNKNOWN INDICATION
     Dosage: 150 MG, BID
     Route: 048
     Dates: start: 20141206
  4. ISOTONIC SODIUM CHLORIDE SOLUTION [Concomitant]
     Active Substance: SODIUM CHLORIDE
     Indication: PRODUCT USED FOR UNKNOWN INDICATION
     Dosage: 100 ML, BID
     Route: 041
     Dates: start: 20130808
  5. RETICOLAN [Concomitant]
     Active Substance: METHYLCOBALAMIN
     Indication: PRODUCT USED FOR UNKNOWN INDICATION
     Dosage: 500 UG, TID
     Route: 048
  6. DESFERAL [Suspect]
     Active Substance: DEFEROXAMINE MESYLATE
     Indication: IRON OVERLOAD
     Dosage: 1000 MG, UNK
     Route: 030
     Dates: start: 20130808, end: 20150702
  7. BFLUID [Concomitant]
     Active Substance: AMINO ACIDS\DEXTROSE\ELECTROLYTES NOS\VITAMINS
     Indication: PRODUCT USED FOR UNKNOWN INDICATION
     Dosage: 1000 ML, UNK
     Route: 041
     Dates: start: 20150626
  8. MERISLON [Concomitant]
     Active Substance: BETAHISTINE MESILATE
     Indication: PRODUCT USED FOR UNKNOWN INDICATION
     Dosage: 6 MG, UNK
     Route: 048
     Dates: start: 20150625
  9. ENSURE [Concomitant]
     Active Substance: AMINO ACIDS\DEXTROSE\ELECTROLYTES NOS\SOYBEAN OIL\VITAMINS
     Indication: PRODUCT USED FOR UNKNOWN INDICATION
     Dosage: 250 ML, QD
     Route: 048
  10. DISTILLED WATER [Concomitant]
     Indication: PRODUCT USED FOR UNKNOWN INDICATION
     Dosage: 20 ML, UNK
     Route: 065
     Dates: start: 20130808, end: 20150702
  11. NITRODERM [Concomitant]
     Active Substance: NITROGLYCERIN
     Indication: PRODUCT USED FOR UNKNOWN INDICATION
     Dosage: 1 DF, UNK
     Route: 065
     Dates: start: 20140809, end: 20150624
  12. UBIDECARENONE [Concomitant]
     Active Substance: UBIDECARENONE
     Indication: PRODUCT USED FOR UNKNOWN INDICATION
     Dosage: 1 DF, TID
     Route: 048
  13. ASPARA POTASSIUM [Concomitant]
     Active Substance: POTASSIUM ASPARTATE
     Indication: PRODUCT USED FOR UNKNOWN INDICATION
     Dosage: 1 DF, QD
     Route: 048
  14. LUPRAC [Concomitant]
     Active Substance: TORSEMIDE
     Indication: PRODUCT USED FOR UNKNOWN INDICATION
     Dosage: 4 MG, UNK
     Route: 048
     Dates: start: 20140819
  15. MIYA-BM [Concomitant]
     Active Substance: CLOSTRIDIUM BUTYRICUM SPORES STRAIN M-55
     Indication: PRODUCT USED FOR UNKNOWN INDICATION
     Dosage: 1 DF, TID
     Route: 048
  16. MINOFIT [Concomitant]
     Active Substance: CYSTEINE\GLYCINE\GLYCYRRHIZIN
     Indication: PRODUCT USED FOR UNKNOWN INDICATION
     Dosage: 40 ML, UNK
     Route: 042
     Dates: start: 20150626
  17. BETANIS [Concomitant]
     Active Substance: MIRABEGRON
     Indication: PRODUCT USED FOR UNKNOWN INDICATION
     Dosage: 50 MG, UNK
     Route: 048
     Dates: start: 20140809
  18. EDIROL [Concomitant]
     Active Substance: ELDECALCITOL
     Indication: PRODUCT USED FOR UNKNOWN INDICATION
     Dosage: 0.75 UG, UNK
     Route: 048
     Dates: start: 20140809
  19. TEPRENONE [Concomitant]
     Active Substance: TEPRENONE
     Indication: PRODUCT USED FOR UNKNOWN INDICATION
     Dosage: 1 DF, TID
     Route: 048
  20. MINITRO [Concomitant]
     Indication: PRODUCT USED FOR UNKNOWN INDICATION
     Dosage: 1 DF, UNK
     Route: 065
     Dates: start: 20150625

REACTIONS (1)
  - Cardiac failure [Fatal]

NARRATIVE: CASE EVENT DATE: 20150703
